FAERS Safety Report 9881344 (Version 2)
Quarter: 2014Q2

REPORT INFORMATION
  Report Type: Spontaneous
  Country: CH (occurrence: CH)
  Receive Date: 20140207
  Receipt Date: 20140416
  Transmission Date: 20141212
  Serious: Yes (Hospitalization, Other)
  Sender: FDA-Public Use
  Company Number: CH-009507513-1402CHE002450

PATIENT
  Sex: Female

DRUGS (4)
  1. ISENTRESS [Suspect]
     Indication: HIV INFECTION
     Dosage: 400 MG, QD
     Route: 064
  2. ISENTRESS [Suspect]
     Indication: PROPHYLAXIS AGAINST HIV INFECTION
  3. TRUVADA [Suspect]
     Indication: HIV INFECTION
     Dosage: 1 DF, QD
     Route: 064
  4. TRUVADA [Suspect]
     Indication: PROPHYLAXIS AGAINST HIV INFECTION

REACTIONS (3)
  - Premature baby [Recovering/Resolving]
  - Foetal exposure during pregnancy [Recovered/Resolved]
  - Maternal condition affecting foetus [Unknown]
